FAERS Safety Report 6106244-5 (Version None)
Quarter: 2009Q1

REPORT INFORMATION
  Report Type: 
  Country: None (occurrence: None)
  Receive Date: 20090306
  Receipt Date: 20090225
  Transmission Date: 20090719
  Serious: Yes (Disabling)
  Sender: FDA-Public Use
  Company Number: JP-TEVA-186604ISR

PATIENT
  Age: 31 Year
  Sex: Male

DRUGS (3)
  1. CISPLATIN [Suspect]
     Indication: TESTIS CANCER
  2. BLEOMYCIN [Suspect]
     Indication: TESTIS CANCER
  3. ETOPOSIDE [Suspect]
     Indication: TESTIS CANCER

REACTIONS (2)
  - CEREBRAL INFARCTION [None]
  - DIARRHOEA [None]
